FAERS Safety Report 7569998-7 (Version None)
Quarter: 2011Q2

REPORT INFORMATION
  Report Type: 
  Country: None (occurrence: None)
  Receive Date: 20110622
  Receipt Date: 20110622
  Transmission Date: 20111010
  Serious: Yes (Other)
  Sender: FDA-Public Use
  Company Number: None

PATIENT
  Age: 65 Year
  Sex: Female
  Weight: 85.2762 kg

DRUGS (1)
  1. SPIRIVA [Suspect]

REACTIONS (3)
  - DYSPHONIA [None]
  - RESPIRATORY DISORDER [None]
  - COUGH [None]
